FAERS Safety Report 21719510 (Version 1)
Quarter: 2022Q4

REPORT INFORMATION
  Report Type: Spontaneous
  Country: US (occurrence: US)
  Receive Date: 20221213
  Receipt Date: 20221213
  Transmission Date: 20230113
  Serious: No
  Sender: FDA-Public Use
  Company Number: MIQ-02182022-1840

PATIENT
  Sex: Female

DRUGS (2)
  1. IVERMECTIN [Suspect]
     Active Substance: IVERMECTIN
     Indication: COVID-19
     Dosage: 4 TABLETS, QD
     Route: 048
     Dates: start: 202107
  2. IVERMECTIN [Suspect]
     Active Substance: IVERMECTIN
     Indication: Neoplasm malignant
     Dosage: 3 TABLETS, WEEKLY FOR 10 WEEKS
     Route: 048
     Dates: start: 202202

REACTIONS (1)
  - Product use in unapproved indication [Unknown]
